FAERS Safety Report 17413875 (Version 1)
Quarter: 2020Q1

REPORT INFORMATION
  Report Type: Spontaneous
  Country: US (occurrence: US)
  Receive Date: 20200213
  Receipt Date: 20200213
  Transmission Date: 20200409
  Serious: Yes (Life-Threatening, Hospitalization)
  Sender: FDA-Public Use
  Company Number: None

PATIENT
  Age: 31 Year
  Sex: Male

DRUGS (1)
  1. ABILIFY MAINTENA [Suspect]
     Active Substance: ARIPIPRAZOLE
     Indication: SCHIZOAFFECTIVE DISORDER
     Dosage: ?          OTHER FREQUENCY:ONCE MONTHLY BY MD;?
     Route: 030

REACTIONS (2)
  - Product dose omission [None]
  - Suicidal ideation [None]

NARRATIVE: CASE EVENT DATE: 20200212
